FAERS Safety Report 15659944 (Version 1)
Quarter: 2018Q4

REPORT INFORMATION
  Report Type: Report from Study
  Country: US (occurrence: US)
  Receive Date: 20181127
  Receipt Date: 20181127
  Transmission Date: 20190205
  Serious: Yes (Other)
  Sender: FDA-Public Use
  Company Number: US-ACCORD-092943

PATIENT
  Age: 59 Year
  Sex: Male

DRUGS (3)
  1. OXALIPLATIN. [Concomitant]
     Active Substance: OXALIPLATIN
     Indication: ADENOCARCINOMA OF COLON
     Dosage: ADMINISTERED ON WEEKS 1, 3, AND 5 OF EACH 8-WEEK CYCLE
     Route: 042
  2. FLUOROURACIL. [Suspect]
     Active Substance: FLUOROURACIL
     Indication: ADENOCARCINOMA OF COLON
     Dosage: 500 MG/M2 INTRAVENOUS (I.V.) BOLUS WEEKLY
     Route: 040
  3. CALCIUM FOLINATE/FOLINIC ACID/SODIUM FOLINATE [Concomitant]
     Indication: ADENOCARCINOMA OF COLON
     Dosage: FOR 6 WEEKS
     Route: 042

REACTIONS (1)
  - Arteriospasm coronary [Recovered/Resolved]
